FAERS Safety Report 18324824 (Version 1)
Quarter: 2020Q3

REPORT INFORMATION
  Report Type: Spontaneous
  Country: CN (occurrence: CN)
  Receive Date: 20200929
  Receipt Date: 20200929
  Transmission Date: 20201103
  Serious: Yes (Other)
  Sender: FDA-Public Use
  Company Number: CN-PFIZER INC-2020373696

PATIENT
  Sex: Male

DRUGS (1)
  1. CYTARABINE. [Suspect]
     Active Substance: CYTARABINE
     Dosage: UNK

REACTIONS (1)
  - Myelosuppression [Unknown]
